FAERS Safety Report 10944088 (Version 1)
Quarter: 2015Q1

REPORT INFORMATION
  Report Type: Spontaneous
  Country: US (occurrence: US)
  Receive Date: 20150323
  Receipt Date: 20150323
  Transmission Date: 20150721
  Serious: Yes (Hospitalization)
  Sender: FDA-Public Use
  Company Number: US-BEH-2015049613

PATIENT
  Sex: Male
  Weight: 71.2 kg

DRUGS (38)
  1. PRIVIGEN [Suspect]
     Active Substance: HUMAN IMMUNOGLOBULIN G
     Route: 042
  2. SINGULAIR [Concomitant]
     Active Substance: MONTELUKAST SODIUM
  3. DETROL [Concomitant]
     Active Substance: TOLTERODINE TARTRATE
  4. TRICOR [Concomitant]
     Active Substance: FENOFIBRATE
  5. NEXIUM [Concomitant]
     Active Substance: ESOMEPRAZOLE MAGNESIUM
  6. DOCUSATE SODIUM. [Concomitant]
     Active Substance: DOCUSATE SODIUM
  7. NASCOBAL [Concomitant]
     Active Substance: CYANOCOBALAMIN
  8. PRIVIGEN [Suspect]
     Active Substance: HUMAN IMMUNOGLOBULIN G
     Indication: IMMUNODEFICIENCY COMMON VARIABLE
     Route: 042
  9. SODIUM CHLORIDE. [Concomitant]
     Active Substance: SODIUM CHLORIDE
  10. HYDROCODONE BITARTRATE AND ACETAMINOPHEN [Concomitant]
     Active Substance: ACETAMINOPHEN\HYDROCODONE BITARTRATE
  11. PROAIR HFA [Concomitant]
     Active Substance: ALBUTEROL SULFATE
  12. GABAPENTIN. [Concomitant]
     Active Substance: GABAPENTIN
  13. PROMETHAZINE [Concomitant]
     Active Substance: PROMETHAZINE\PROMETHAZINE HYDROCHLORIDE
  14. SYMBICORT [Concomitant]
     Active Substance: BUDESONIDE\FORMOTEROL FUMARATE DIHYDRATE
  15. LASIX [Concomitant]
     Active Substance: FUROSEMIDE
  16. DIPHENHYDRAMINE [Concomitant]
     Active Substance: DIPHENHYDRAMINE
  17. SLOW-MAG [Concomitant]
     Active Substance: MAGNESIUM CHLORIDE
  18. FOLIC ACID. [Concomitant]
     Active Substance: FOLIC ACID
  19. FEXOFENADINE [Concomitant]
     Active Substance: FEXOFENADINE\FEXOFENADINE HYDROCHLORIDE
  20. MAGNESIUM OXIDE. [Concomitant]
     Active Substance: MAGNESIUM OXIDE
  21. AMILORIDE [Concomitant]
     Active Substance: AMILORIDE
  22. HYDROXYZINE [Concomitant]
     Active Substance: HYDROXYZINE\HYDROXYZINE HYDROCHLORIDE
  23. VITAMIN D [Concomitant]
     Active Substance: CHOLECALCIFEROL
  24. PRIVIGEN [Suspect]
     Active Substance: HUMAN IMMUNOGLOBULIN G
     Route: 042
  25. HEPARIN [Concomitant]
     Active Substance: HEPARIN SODIUM
  26. TAZTIA XT [Concomitant]
     Active Substance: DILTIAZEM HYDROCHLORIDE
  27. COUMADIN [Concomitant]
     Active Substance: WARFARIN SODIUM
  28. ASTEPRO [Concomitant]
     Active Substance: AZELASTINE HYDROCHLORIDE
  29. SPIRONOLACTONE. [Concomitant]
     Active Substance: SPIRONOLACTONE
  30. THEOPHYLLINE [Concomitant]
     Active Substance: THEOPHYLLINE ANHYDROUS
  31. DOCUSATE CAL [Concomitant]
  32. LOPERAMIDE [Concomitant]
     Active Substance: LOPERAMIDE
  33. EPIPEN [Concomitant]
     Active Substance: EPINEPHRINE
  34. FAMOTIDINE. [Concomitant]
     Active Substance: FAMOTIDINE
  35. VITAMIN B12 [Concomitant]
     Active Substance: CYANOCOBALAMIN
  36. MAGNESIUM CHLORIDE. [Concomitant]
     Active Substance: MAGNESIUM CHLORIDE
  37. FERROUS SULFATE [Concomitant]
     Active Substance: FERROUS SULFATE\FERROUS SULFATE, DRIED
  38. ALLOPURINOL. [Concomitant]
     Active Substance: ALLOPURINOL

REACTIONS (1)
  - Device related infection [Unknown]
